FAERS Safety Report 8515938-3 (Version None)
Quarter: 2012Q3

REPORT INFORMATION
  Report Type: 
  Country: None (occurrence: None)
  Receive Date: 20120717
  Receipt Date: 20120710
  Transmission Date: 20120928
  Serious: Yes (Other)
  Sender: FDA-Public Use
  Company Number: US-TEVA-348026USA

PATIENT
  Sex: Female
  Weight: 49.94 kg

DRUGS (9)
  1. NUVIGIL [Suspect]
     Indication: NARCOLEPSY
     Dosage: 250 MILLIGRAM;
     Route: 048
     Dates: start: 20120620, end: 20120624
  2. TRAMADOL HCL [Concomitant]
     Indication: ARTHRITIS
     Dosage: 150 MILLIGRAM;
     Route: 048
  3. NASONEX [Concomitant]
     Route: 061
  4. HYDROCODONE BITARTRATE AND ACETAMINOPHEN [Concomitant]
     Indication: MIGRAINE
     Dosage: PRN
     Route: 048
  5. RITALIN [Concomitant]
     Indication: NARCOLEPSY
     Dosage: 10 MILLIGRAM; PRN
     Route: 048
  6. CYCLOBENAZPRINE [Concomitant]
     Indication: MIGRAINE
     Dosage: PRN
     Route: 048
  7. TRAMADOL HCL [Concomitant]
     Indication: MYALGIA
  8. ALBUTEROL [Concomitant]
     Dosage: PRN
  9. PROMETHAZINE [Concomitant]
     Dosage: PRN
     Route: 048

REACTIONS (17)
  - PARANOIA [None]
  - HEADACHE [None]
  - NIGHTMARE [None]
  - DYSPNOEA [None]
  - ANXIETY [None]
  - SUFFOCATION FEELING [None]
  - TACHYPHRENIA [None]
  - INSOMNIA [None]
  - PALPITATIONS [None]
  - MANIA [None]
  - CHEST PAIN [None]
  - HALLUCINATION, AUDITORY [None]
  - IRRITABILITY [None]
  - PAIN IN EXTREMITY [None]
  - NECK PAIN [None]
  - PANIC ATTACK [None]
  - PLEURAL DISORDER [None]
